FAERS Safety Report 11269384 (Version 1)
Quarter: 2015Q3

REPORT INFORMATION
  Report Type: Spontaneous
  Country: US (occurrence: US)
  Receive Date: 20150714
  Receipt Date: 20150714
  Transmission Date: 20151125
  Serious: Yes (Other)
  Sender: FDA-Public Use
  Company Number: US-ASTRAZENECA-2015SE66368

PATIENT
  Sex: Female
  Weight: 54 kg

DRUGS (1)
  1. SYMBICORT [Suspect]
     Active Substance: BUDESONIDE\FORMOTEROL FUMARATE DIHYDRATE
     Indication: CHRONIC OBSTRUCTIVE PULMONARY DISEASE
     Dosage: 160 4.5MCG 2 PUFFS TWICE A DAY
     Route: 055

REACTIONS (6)
  - Nasal polyps [Unknown]
  - Osteoarthritis [Unknown]
  - Body height decreased [Unknown]
  - Adrenal adenoma [Unknown]
  - Joint dislocation [Unknown]
  - Stress fracture [Unknown]
